FAERS Safety Report 19921441 (Version 1)
Quarter: 2021Q4

REPORT INFORMATION
  Report Type: Report from Study
  Country: CA (occurrence: CA)
  Receive Date: 20211006
  Receipt Date: 20211006
  Transmission Date: 20220303
  Serious: Yes (Other)
  Sender: FDA-Public Use
  Company Number: CA-NOVARTISPH-NVSC2021CA222197

PATIENT
  Sex: Female

DRUGS (1)
  1. FINGOLIMOD [Suspect]
     Active Substance: FINGOLIMOD
     Indication: Product used for unknown indication
     Dosage: 0.5 MG
     Route: 048

REACTIONS (5)
  - Bradycardia [Unknown]
  - Headache [Unknown]
  - Dyspepsia [Unknown]
  - Malaise [Unknown]
  - Somnolence [Unknown]
